FAERS Safety Report 8577934 (Version 4)
Quarter: 2013Q2

REPORT INFORMATION
  Report Type: Spontaneous
  Country: US (occurrence: None)
  Receive Date: 20120521
  Receipt Date: 20130604
  Transmission Date: 20140414
  Serious: Yes (Hospitalization)
  Sender: FDA-Public Use
  Company Number: 2012-2138

PATIENT
  Age: 16 Year
  Sex: Male
  Weight: 56.7 kg

DRUGS (4)
  1. INCRELEX [Suspect]
     Indication: PRIMARY INSULIN LIKE GROWTH FACTOR-1 DEFICIENCY
     Dosage: 34 UNITS (17 UNITS,2 IN 1 D),SUBCUTANEOUS
     Route: 058
  2. INCRELEX [Suspect]
     Dosage: 34 UNITS (17 UNITS,2 IN 1 D),SUBCUTANEOUS
     Route: 058
  3. INCRELEX [Suspect]
     Dosage: 34 UNITS (17 UNITS,2 IN 1 D),SUBCUTANEOUS
     Route: 058
  4. NUTROPIN AQ 5 MG/ML (NUTROPIN)(SOMATROPIN)(SOMATROPIN) [Concomitant]

REACTIONS (6)
  - Ankle fracture [None]
  - Wrist fracture [None]
  - Fall [None]
  - Ulna fracture [None]
  - Radius fracture [None]
  - Open fracture [None]
